FAERS Safety Report 19310460 (Version 2)
Quarter: 2021Q3

REPORT INFORMATION
  Report Type: Spontaneous
  Country: US (occurrence: US)
  Receive Date: 20210526
  Receipt Date: 20210805
  Transmission Date: 20211014
  Serious: No
  Sender: FDA-Public Use
  Company Number: US-ALKERMES INC.-ALK-2021-002599

PATIENT
  Sex: Male

DRUGS (1)
  1. NO COMPANY PRODUCT [Suspect]
     Active Substance: UNSPECIFIED INGREDIENT
     Dosage: NO DRUG ADMINISTERED

REACTIONS (1)
  - General physical health deterioration [Not Recovered/Not Resolved]
